FAERS Safety Report 7647480-6 (Version None)
Quarter: 2011Q3

REPORT INFORMATION
  Report Type: 
  Country: None (occurrence: None)
  Receive Date: 20110801
  Receipt Date: 20110714
  Transmission Date: 20111222
  Serious: Yes (Hospitalization)
  Sender: FDA-Public Use
  Company Number: US-GLAXOSMITHKLINE-A0837545A

PATIENT
  Sex: Male
  Weight: 73.2 kg

DRUGS (1)
  1. AVANDIA [Suspect]
     Indication: DIABETES MELLITUS
     Route: 048
     Dates: start: 20050101, end: 20090101

REACTIONS (4)
  - VIITH NERVE PARALYSIS [None]
  - BLOOD GLUCOSE DECREASED [None]
  - RENAL FAILURE [None]
  - CONDITION AGGRAVATED [None]
